FAERS Safety Report 11052278 (Version 2)
Quarter: 2015Q2

REPORT INFORMATION
  Report Type: Spontaneous
  Country: BR (occurrence: BR)
  Receive Date: 20150421
  Receipt Date: 20150421
  Transmission Date: 20150821
  Serious: Yes (Hospitalization, Other)
  Sender: FDA-Public Use
  Company Number: PHHY2015BR046027

PATIENT
  Age: 58 Year
  Sex: Female
  Weight: 80 kg

DRUGS (16)
  1. ONBREZ BREEZHALER [Suspect]
     Active Substance: INDACATEROL
     Dosage: 1 DF, BID
     Route: 055
  2. FRONTAL [Suspect]
     Active Substance: ALPRAZOLAM
     Indication: SPINAL PAIN
     Dosage: 1 DF, QD
     Route: 048
     Dates: start: 2007
  3. FRONTAL [Suspect]
     Active Substance: ALPRAZOLAM
     Indication: INSOMNIA
  4. OMEPRAZOLE. [Suspect]
     Active Substance: OMEPRAZOLE
     Indication: ABDOMINAL PAIN UPPER
     Dosage: 2 DF, QD
     Route: 048
  5. FORASEQ [Suspect]
     Active Substance: BUDESONIDE\FORMOTEROL FUMARATE
     Indication: ASTHMA
     Dosage: UNK, BID
     Route: 055
  6. HIXIZINE [Suspect]
     Active Substance: HYDROXYZINE HYDROCHLORIDE
     Indication: HYPERSENSITIVITY
     Dosage: 1 DF, QD
     Route: 048
  7. SERTRALINE [Suspect]
     Active Substance: SERTRALINE HYDROCHLORIDE
     Indication: DEPRESSION
     Dosage: 1 DF, QD
     Route: 048
  8. FORASEQ [Suspect]
     Active Substance: BUDESONIDE\FORMOTEROL FUMARATE
     Indication: ECZEMA
  9. PREDNISONE. [Suspect]
     Active Substance: PREDNISONE
     Indication: LUNG DISORDER
     Dosage: 2 DF, QD
     Route: 048
  10. LOSARTAN [Suspect]
     Active Substance: LOSARTAN
     Indication: HYPERTENSION
     Dosage: 2 DF, QD
     Route: 048
     Dates: start: 2007
  11. ONBREZ BREEZHALER [Suspect]
     Active Substance: INDACATEROL
     Indication: CHRONIC OBSTRUCTIVE PULMONARY DISEASE
     Dosage: 1 DF, QD
     Route: 055
  12. OMEPRAZOLE. [Suspect]
     Active Substance: OMEPRAZOLE
     Indication: GASTROOESOPHAGEAL REFLUX DISEASE
  13. QUETROS [Suspect]
     Active Substance: QUETIAPINE
     Indication: NERVOUSNESS
     Dosage: 1 DF, QD
     Route: 048
  14. VERTIX//FLUNARIZINE DIHYDROCHLORIDE [Suspect]
     Active Substance: FLUNARIZINE HYDROCHLORIDE
     Indication: LABYRINTHITIS
     Dosage: 1 DF, QD
     Route: 048
  15. ACETYLCYSTEINE. [Suspect]
     Active Substance: ACETYLCYSTEINE
     Indication: SECRETION DISCHARGE
     Dosage: 2 DF, QD
     Route: 048
  16. SIMVASTATIN. [Suspect]
     Active Substance: SIMVASTATIN
     Indication: BLOOD CHOLESTEROL ABNORMAL
     Dosage: 1 DF, QD
     Route: 048

REACTIONS (10)
  - Cerebral ischaemia [Unknown]
  - Hypokinesia [Unknown]
  - Tremor [Unknown]
  - Mouth injury [Recovered/Resolved]
  - Incorrect dose administered [Unknown]
  - Eczema [Recovering/Resolving]
  - Asthma [Recovering/Resolving]
  - Chronic obstructive pulmonary disease [Recovering/Resolving]
  - Chest pain [Unknown]
  - Product use issue [Unknown]

NARRATIVE: CASE EVENT DATE: 201402
